FAERS Safety Report 5101855-8 (Version None)
Quarter: 2006Q3

REPORT INFORMATION
  Report Type: 
  Country: None (occurrence: None)
  Receive Date: 20060731
  Receipt Date: 20060520
  Transmission Date: 20061208
  Serious: No
  Sender: FDA-Public Use
  Company Number: 2006PV014207

PATIENT
  Age: 73 Year
  Sex: Female
  Weight: 107.5025 kg

DRUGS (3)
  1. BYETTA [Suspect]
     Indication: DIABETES MELLITUS NON-INSULIN-DEPENDENT
     Dosage: 5 MCG; BID; SC
     Route: 058
     Dates: start: 20060520
  2. METFORMIN HCL [Concomitant]
  3. GLYBURIDE [Concomitant]

REACTIONS (5)
  - DIZZINESS [None]
  - DYSKINESIA [None]
  - HYPOGLYCAEMIA [None]
  - NAUSEA [None]
  - VISION BLURRED [None]
